FAERS Safety Report 15037137 (Version 2)
Quarter: 2019Q1

REPORT INFORMATION
  Report Type: Spontaneous
  Country: US (occurrence: US)
  Receive Date: 20180620
  Receipt Date: 20190116
  Transmission Date: 20190417
  Serious: No
  Sender: FDA-Public Use
  Company Number: US-009507513-1806USA003922

PATIENT
  Age: 27 Year
  Sex: Female
  Weight: 110.22 kg

DRUGS (1)
  1. NEXPLANON [Suspect]
     Active Substance: ETONOGESTREL
     Indication: PRODUCT USED FOR UNKNOWN INDICATION
     Dosage: UNK
     Route: 059
     Dates: start: 20161130

REACTIONS (2)
  - Device breakage [Not Recovered/Not Resolved]
  - Accident at work [Recovering/Resolving]

NARRATIVE: CASE EVENT DATE: 20180604
